FAERS Safety Report 10628978 (Version 1)
Quarter: 2014Q4

REPORT INFORMATION
  Report Type: Spontaneous
  Country: US (occurrence: US)
  Receive Date: 20141205
  Receipt Date: 20141205
  Transmission Date: 20150529
  Serious: No
  Sender: FDA-Public Use
  Company Number: US-BRISTOL-MYERS SQUIBB COMPANY-21352471

PATIENT
  Sex: Female

DRUGS (3)
  1. ZERIT [Suspect]
     Active Substance: STAVUDINE
  2. SUSTIVA [Suspect]
     Active Substance: EFAVIRENZ
  3. EPIVIR [Suspect]
     Active Substance: LAMIVUDINE

REACTIONS (1)
  - Collagen disorder [Unknown]
